FAERS Safety Report 12596472 (Version 1)
Quarter: 2016Q3

REPORT INFORMATION
  Report Type: Spontaneous
  Country: US (occurrence: US)
  Receive Date: 20160726
  Receipt Date: 20160726
  Transmission Date: 20161109
  Serious: No
  Sender: FDA-Public Use
  Company Number: GXBR2016US000833

PATIENT
  Sex: Female
  Weight: 84.26 kg

DRUGS (1)
  1. LOVASTATIN TABLETS, USP [Suspect]
     Active Substance: LOVASTATIN
     Indication: HYPERLIPIDAEMIA
     Dosage: UNK DF, UNK
     Route: 065

REACTIONS (1)
  - Drug ineffective [Unknown]
